FAERS Safety Report 5482565-4 (Version None)
Quarter: 2007Q4

REPORT INFORMATION
  Report Type: 
  Country: None (occurrence: None)
  Receive Date: 20071011
  Receipt Date: 20070710
  Transmission Date: 20080405
  Serious: No
  Sender: FDA-Public Use
  Company Number: A0662822A

PATIENT
  Age: 59 Year
  Sex: Female

DRUGS (7)
  1. TYKERB [Suspect]
     Indication: BREAST CANCER
     Dosage: 1250MG TWICE PER DAY
     Route: 048
     Dates: start: 20070619, end: 20070706
  2. KEPPRA [Concomitant]
  3. POTASSIUM CHLORIDE [Concomitant]
  4. LISINOPRIL [Concomitant]
  5. LEVOTHYROXINE SODIUM [Concomitant]
  6. LEXAPRO [Concomitant]
  7. PREVACID [Concomitant]

REACTIONS (1)
  - DIARRHOEA [None]
